FAERS Safety Report 9338671 (Version 2)
Quarter: 2013Q2

REPORT INFORMATION
  Report Type: Spontaneous
  Country: US (occurrence: US)
  Receive Date: 20130610
  Receipt Date: 20130610
  Transmission Date: 20140414
  Serious: Yes (Other)
  Sender: FDA-Public Use
  Company Number: US-BRISTOL-MYERS SQUIBB COMPANY-18733113

PATIENT
  Age: 31 Year
  Sex: Male

DRUGS (2)
  1. SUSTIVA TABS 600 MG [Suspect]
  2. REYATAZ CAPS 300 MG [Suspect]

REACTIONS (1)
  - Drug ineffective [Unknown]
